FAERS Safety Report 6871678-8 (Version None)
Quarter: 2010Q3

REPORT INFORMATION
  Report Type: 
  Country: None (occurrence: None)
  Receive Date: 20100723
  Receipt Date: 20100715
  Transmission Date: 20110219
  Serious: Yes (Other)
  Sender: FDA-Public Use
  Company Number: GXKR2010GB07908

PATIENT
  Age: 45 Year
  Sex: Female

DRUGS (13)
  1. DIAZEPAM [Suspect]
     Indication: ANXIETY
     Dosage: 10 MG, QD
     Route: 048
  2. DIHYDROCODEINE BITARTRATE INJ [Interacting]
     Indication: PAIN
     Dosage: 30 MG, BID
     Route: 048
     Dates: end: 20100618
  3. HALOPERIDOL (NGX) [Interacting]
     Indication: PSYCHOTIC DISORDER
     Dosage: 10 MG, QD
     Route: 048
  4. ZOLPIDEM (NGX) [Interacting]
     Indication: INSOMNIA
     Dosage: 10 MG, QD
     Route: 048
     Dates: end: 20100618
  5. ZOLPIDEM (NGX) [Interacting]
     Dosage: 40 MG, QD
  6. CAFFEINE [Interacting]
     Indication: INSOMNIA
     Dosage: 16 MG, QD
  7. VALPROATE SODIUM [Interacting]
     Indication: AFFECTIVE DISORDER
     Dosage: 800 MG, UNK
     Route: 048
  8. AMLODIPINE [Concomitant]
     Dosage: 40 MG, QD
  9. ASPIRIN [Concomitant]
     Dosage: 10 MG, QD
  10. CANDESARTAN CILEXETIL [Concomitant]
     Dosage: 75 MG, QD
  11. LANSOPRAZOLE [Concomitant]
     Dosage: 5 MG, QD
  12. PROCYCLIDINE HYDROCHLORIDE 2MG TAB [Concomitant]
     Indication: DIABETES MELLITUS
  13. SIMVASTATIN [Concomitant]
     Dosage: 10 MG, QD

REACTIONS (5)
  - CONFUSIONAL STATE [None]
  - DRUG ABUSE [None]
  - DRUG INTERACTION [None]
  - HALLUCINATION [None]
  - SEDATION [None]
